FAERS Safety Report 9277089 (Version 1)
Quarter: 2013Q2

REPORT INFORMATION
  Report Type: Spontaneous
  Country: US (occurrence: US)
  Receive Date: 20130507
  Receipt Date: 20130507
  Transmission Date: 20140414
  Serious: Yes (Hospitalization, Other)
  Sender: FDA-Public Use
  Company Number: US-ALLERGAN-1306195US

PATIENT
  Age: 3 Month
  Sex: Male

DRUGS (2)
  1. COMBIGAN[R] [Suspect]
     Indication: HAEMANGIOMA
     Dosage: 1 GTT, BID
     Route: 061
  2. DULOXETINE [Suspect]
     Indication: PRODUCT USED FOR UNKNOWN INDICATION
     Dosage: UNK UNK, BID
     Route: 063

REACTIONS (6)
  - Pallor [Recovered/Resolved]
  - Unresponsive to stimuli [Recovered/Resolved]
  - Off label use [Unknown]
  - Hypothermia [Recovered/Resolved]
  - Hypotonia [Recovered/Resolved]
  - Lethargy [Recovered/Resolved]
